FAERS Safety Report 15996281 (Version 8)
Quarter: 2019Q4

REPORT INFORMATION
  Report Type: Report from Study
  Country: US (occurrence: US)
  Receive Date: 20190222
  Receipt Date: 20191220
  Transmission Date: 20200122
  Serious: Yes (Hospitalization)
  Sender: FDA-Public Use
  Company Number: US-ACTELION-A-US2018-183499

PATIENT
  Age: 76 Year
  Sex: Female
  Weight: 87.98 kg

DRUGS (27)
  1. UPTRAVI [Suspect]
     Active Substance: SELEXIPAG
     Dosage: 1000 MCG, BID
     Route: 048
     Dates: start: 201811
  2. CORTICOSTEROID NOS [Concomitant]
     Active Substance: CORTICOSTEROID NOS
     Dosage: UNK, QD
     Route: 045
  3. CHLORHEXIDINE [Concomitant]
     Active Substance: CHLORHEXIDINE
  4. FAMOTIDINE. [Concomitant]
     Active Substance: FAMOTIDINE
     Dosage: 20 MG, QD
  5. UPTRAVI [Suspect]
     Active Substance: SELEXIPAG
     Dosage: 800 MCG, BID
     Route: 048
     Dates: start: 20181108
  6. GABAPENTIN. [Concomitant]
     Active Substance: GABAPENTIN
     Indication: NEURALGIA
  7. LISINOPRIL. [Concomitant]
     Active Substance: LISINOPRIL
     Dosage: 20 MG, QD
     Route: 048
  8. DIGOXIN. [Concomitant]
     Active Substance: DIGOXIN
     Dosage: 125 MCG, QD
     Route: 048
  9. BROVANA [Concomitant]
     Active Substance: ARFORMOTEROL TARTRATE
     Dosage: 2 ML, BID
     Route: 045
  10. PULMICORT TURBUHALER [Concomitant]
     Active Substance: BUDESONIDE
     Dosage: UNK UNK, BID
     Route: 055
  11. LASIX [Concomitant]
     Active Substance: FUROSEMIDE
     Dosage: 80 MG, QD
     Route: 048
  12. DILTIAZEM. [Concomitant]
     Active Substance: DILTIAZEM
     Dosage: 120 MG, BID
     Route: 048
  13. OCULAR LUBRICANT [Concomitant]
     Dosage: 1 DROP, TID
  14. UPTRAVI [Suspect]
     Active Substance: SELEXIPAG
     Indication: PULMONARY ARTERIAL HYPERTENSION
     Dosage: 1600 MCG, BID
     Route: 048
  15. AMITRIPTYLINE HCL [Concomitant]
     Active Substance: AMITRIPTYLINE
     Dosage: 25 MG, QPM
     Route: 048
  16. PULMICORT TURBUHALER [Concomitant]
     Active Substance: BUDESONIDE
     Dosage: 2 ML, QD
     Route: 055
  17. BUDESONIDE. [Concomitant]
     Active Substance: BUDESONIDE
     Dosage: 0.5 MG, BID
  18. HUMALOG [Concomitant]
     Active Substance: INSULIN LISPRO
     Dosage: UNK, QID
  19. UPTRAVI [Suspect]
     Active Substance: SELEXIPAG
     Dosage: 600 MCG, BID
     Route: 048
  20. RANITIDINE HCL [Concomitant]
     Active Substance: RANITIDINE HYDROCHLORIDE
     Dosage: 150 MG, QPM
     Route: 048
  21. RIVAROXABAN [Concomitant]
     Active Substance: RIVAROXABAN
     Dosage: 15 MG
  22. UPTRAVI [Suspect]
     Active Substance: SELEXIPAG
     Dosage: 200 MCG BID
     Route: 048
  23. IPRATROPIUM BROMIDE. [Concomitant]
     Active Substance: IPRATROPIUM BROMIDE
     Dosage: 0.02 %
  24. ALBUTEROL SULFATE. [Concomitant]
     Active Substance: ALBUTEROL SULFATE
     Dosage: 3ML TID, PRN
     Route: 055
  25. ALBUTEROL SULFATE. [Concomitant]
     Active Substance: ALBUTEROL SULFATE
     Dosage: QID, PRN
     Route: 055
     Dates: start: 2017
  26. XARELTO [Concomitant]
     Active Substance: RIVAROXABAN
     Dosage: 15 MG, QD WITH FOOD
     Route: 048
  27. TUBERSOL [Concomitant]
     Active Substance: TUBERCULIN PURIFIED PROTEIN DERIVATIVE
     Route: 023

REACTIONS (42)
  - Heart rate increased [Recovered/Resolved]
  - Therapy non-responder [Unknown]
  - Angiopathy [Unknown]
  - Fluid overload [Unknown]
  - Myalgia [Unknown]
  - Pulmonary hypertension [Unknown]
  - Dyspnoea [Unknown]
  - Productive cough [Unknown]
  - Haemoptysis [Unknown]
  - Neuralgia [Unknown]
  - Sepsis [Recovered/Resolved]
  - Pain in extremity [Unknown]
  - Condition aggravated [Unknown]
  - Hypoxia [Recovered/Resolved]
  - Hypotension [Unknown]
  - Glomerular filtration rate decreased [Unknown]
  - Proteus infection [Unknown]
  - Wheezing [Unknown]
  - Respiratory failure [Unknown]
  - Anxiety [Unknown]
  - Tracheal disorder [Unknown]
  - Product administration error [Unknown]
  - Aspiration [Unknown]
  - Asthma [Recovered/Resolved]
  - Pyrexia [Recovered/Resolved]
  - Peripheral swelling [Unknown]
  - Oedema peripheral [Unknown]
  - White blood cell count decreased [Unknown]
  - Product dose omission [Unknown]
  - Neck pain [Unknown]
  - Arthralgia [Unknown]
  - Tracheal inflammation [Unknown]
  - Bronchitis [Unknown]
  - Musculoskeletal stiffness [Unknown]
  - Pneumonia [Unknown]
  - Lethargy [Recovered/Resolved]
  - Cardiac failure congestive [Unknown]
  - Atrial fibrillation [Unknown]
  - Haemoglobin decreased [Unknown]
  - Neuropathy peripheral [Unknown]
  - Secretion discharge [Unknown]
  - Aphonia [Unknown]

NARRATIVE: CASE EVENT DATE: 20181130
